FAERS Safety Report 24617314 (Version 1)
Quarter: 2024Q4

REPORT INFORMATION
  Report Type: Report from Study
  Country: US (occurrence: US)
  Receive Date: 20241114
  Receipt Date: 20241114
  Transmission Date: 20250115
  Serious: Yes (Other)
  Sender: JOHNSON AND JOHNSON
  Company Number: US-JNJFOC-20241119850

PATIENT
  Age: 34 Year
  Sex: Male

DRUGS (5)
  1. SPRAVATO [Suspect]
     Active Substance: ESKETAMINE
     Indication: Depression
     Dosage: ^56 MG, 4 TOTAL DOSES^
     Dates: start: 20240716, end: 20240725
  2. SPRAVATO [Suspect]
     Active Substance: ESKETAMINE
     Dosage: ^84 MG, 1 TOTAL DOSE^
     Dates: start: 20240729, end: 20240729
  3. SPRAVATO [Suspect]
     Active Substance: ESKETAMINE
     Dosage: ^56 MG, 6 TOTAL DOSES^
     Dates: start: 20240802, end: 20240819
  4. SPRAVATO [Suspect]
     Active Substance: ESKETAMINE
     Dosage: ^84 MG, 7 TOTAL DOSES^
     Dates: start: 20240823, end: 20240917
  5. SPRAVATO [Suspect]
     Active Substance: ESKETAMINE
     Dates: start: 202411

REACTIONS (3)
  - Limb injury [Unknown]
  - Depression [Unknown]
  - Anxiety [Recovered/Resolved]

NARRATIVE: CASE EVENT DATE: 20240101
